FAERS Safety Report 17388988 (Version 1)
Quarter: 2020Q1

REPORT INFORMATION
  Report Type: Spontaneous
  Country: NO (occurrence: NO)
  Receive Date: 20200206
  Receipt Date: 20200206
  Transmission Date: 20200409
  Serious: Yes (Hospitalization)
  Sender: FDA-Public Use
  Company Number: NO-009507513-2002NOR000769

PATIENT
  Age: 73 Year
  Sex: Female

DRUGS (1)
  1. KEYTRUDA [Suspect]
     Active Substance: PEMBROLIZUMAB
     Indication: SKIN CANCER
     Dosage: EVERY THIRD WEEK
     Dates: start: 201903

REACTIONS (7)
  - Blood albumin decreased [Unknown]
  - Frequent bowel movements [Recovered/Resolved]
  - Flatulence [Unknown]
  - Diarrhoea [Unknown]
  - Gastrointestinal wall thickening [Unknown]
  - Abdominal pain [Recovered/Resolved]
  - C-reactive protein increased [Unknown]

NARRATIVE: CASE EVENT DATE: 2019
